FAERS Safety Report 8832703 (Version 2)
Quarter: 2012Q4

REPORT INFORMATION
  Report Type: 
  Country: US (occurrence: US)
  Receive Date: 20121010
  Receipt Date: 20121214
  Transmission Date: 20130627
  Serious: No
  Sender: FDA-Public Use
  Company Number: US-PFIZER INC-2012248130

PATIENT
  Age: 35 Year
  Sex: Male

DRUGS (2)
  1. CHANTIX [Suspect]
     Dosage: UNK
     Dates: start: 201208
  2. SUBOXONE [Concomitant]
     Indication: DEPENDENCE ON OPIATES
     Dosage: UNK, daily

REACTIONS (5)
  - Nausea [Not Recovered/Not Resolved]
  - Muscle spasms [Unknown]
  - Myalgia [Unknown]
  - Sleep disorder [Unknown]
  - Hyperhidrosis [Unknown]
